FAERS Safety Report 10071645 (Version 3)
Quarter: 2015Q1

REPORT INFORMATION
  Report Type: Report from Study
  Country: CA (occurrence: CA)
  Receive Date: 20140411
  Receipt Date: 20150330
  Transmission Date: 20150720
  Serious: Yes (Hospitalization, Other)
  Sender: FDA-Public Use
  Company Number: CA-AMGEN-CANSP2013078156

PATIENT
  Age: 50 Year
  Sex: Female

DRUGS (7)
  1. METHOTREXATE (METHOTREXATE SODIUM) [Concomitant]
     Active Substance: METHOTREXATE SODIUM
     Dosage: UNK
  2. ENBREL [Suspect]
     Active Substance: ETANERCEPT
     Indication: RHEUMATOID ARTHRITIS
     Dosage: 50 MG, UNK
     Route: 065
     Dates: start: 20130205, end: 20140401
  3. DOMPERIDONE [Concomitant]
     Active Substance: DOMPERIDONE
     Dosage: UNK
  4. CYMBALTA [Concomitant]
     Active Substance: DULOXETINE HYDROCHLORIDE
     Dosage: UNK
  5. NAPROXEN. [Concomitant]
     Active Substance: NAPROXEN
     Dosage: UNK
  6. PREDNISONE. [Concomitant]
     Active Substance: PREDNISONE
     Dosage: 15 MG, UNK
  7. PARIET [Concomitant]
     Active Substance: RABEPRAZOLE SODIUM
     Dosage: UNK

REACTIONS (25)
  - Kidney perforation [Unknown]
  - Abdominal distension [Unknown]
  - Kidney infection [Unknown]
  - Liver function test abnormal [Unknown]
  - Erythema [Unknown]
  - Joint warmth [Unknown]
  - Finger deformity [Unknown]
  - Blood urine present [Unknown]
  - Chromaturia [Unknown]
  - Fall [Unknown]
  - Impaired gastric emptying [Unknown]
  - White blood cell count increased [Unknown]
  - Depression [Unknown]
  - Gastrointestinal inflammation [Unknown]
  - Intestinal perforation [Unknown]
  - Lung disorder [Unknown]
  - Dehydration [Unknown]
  - Blood glucose increased [Unknown]
  - Burning sensation [Unknown]
  - Herpes zoster [Unknown]
  - Joint swelling [Unknown]
  - Bacterial infection [Unknown]
  - Rheumatoid arthritis [Unknown]
  - Nausea [Unknown]
  - Wrist fracture [Unknown]

NARRATIVE: CASE EVENT DATE: 201311
